FAERS Safety Report 9928708 (Version 5)
Quarter: 2014Q3

REPORT INFORMATION
  Report Type: Spontaneous
  Country: US (occurrence: US)
  Receive Date: 20140227
  Receipt Date: 20140710
  Transmission Date: 20150326
  Serious: Yes (Death)
  Sender: FDA-Public Use
  Company Number: US-JNJFOC-20140216931

PATIENT
  Age: 51 Year
  Sex: Female

DRUGS (9)
  1. JANUVIA [Concomitant]
     Active Substance: SITAGLIPTIN PHOSPHATE
     Dates: start: 20130117
  2. ABILIFY [Concomitant]
     Active Substance: ARIPIPRAZOLE
     Dates: start: 20130813
  3. TRILIPIX [Concomitant]
     Active Substance: FENOFIBRIC ACID
     Dates: start: 20121024
  4. CALCIUM [Concomitant]
     Active Substance: CALCIUM
     Dates: start: 20100316
  5. METFORMIN [Concomitant]
     Active Substance: METFORMIN HYDROCHLORIDE
     Dates: start: 20100316
  6. MULTIPLE VITAMINS [Concomitant]
     Active Substance: VITAMINS
     Dates: start: 20100316
  7. ALIGN NOS [Concomitant]
     Route: 048
  8. INVOKANA [Suspect]
     Active Substance: CANAGLIFLOZIN
     Indication: DIABETES MELLITUS
     Route: 048
     Dates: start: 20131112
  9. FISH OIL [Concomitant]
     Active Substance: FISH OIL
     Dates: start: 20120822

REACTIONS (5)
  - Cardiac arrest [Fatal]
  - Vertigo [Unknown]
  - Death [Fatal]
  - Musculoskeletal pain [Unknown]
  - Dyspnoea [Unknown]

NARRATIVE: CASE EVENT DATE: 201401
